FAERS Safety Report 9165656 (Version 2)
Quarter: 2013Q2

REPORT INFORMATION
  Report Type: Report from Study
  Country: FR (occurrence: FR)
  Receive Date: 20130315
  Receipt Date: 20130403
  Transmission Date: 20140414
  Serious: Yes (Death)
  Sender: FDA-Public Use
  Company Number: FR-009507513-1303FRA004483

PATIENT
  Age: 76 Year
  Sex: Male
  Weight: 98 kg

DRUGS (7)
  1. SITAGLIPTIN PHOSPHATE [Suspect]
     Indication: DIABETES MELLITUS
     Dosage: 100 MG, QD
     Route: 048
     Dates: start: 20100310
  2. AMAREL [Concomitant]
     Indication: DIABETES MELLITUS
     Dosage: 4 MG, QD
     Dates: start: 20100310
  3. METFORMIN [Concomitant]
     Indication: DIABETES MELLITUS
     Dosage: 1000 MG, QD
     Dates: start: 20100310
  4. PLAVIX [Concomitant]
     Dosage: UNK
  5. INEGY [Concomitant]
     Dosage: UNK
     Route: 048
  6. LANSOPRAZOLE [Concomitant]
     Dosage: UNK
  7. SPIRONOLACTONE [Concomitant]
     Dosage: UNK

REACTIONS (2)
  - Colorectal cancer metastatic [Fatal]
  - Hypoglycaemia [Recovered/Resolved]
